FAERS Safety Report 7650050-7 (Version None)
Quarter: 2011Q3

REPORT INFORMATION
  Report Type: 
  Country: None (occurrence: None)
  Receive Date: 20110802
  Receipt Date: 20110802
  Transmission Date: 20111222
  Serious: Yes (Other)
  Sender: FDA-Public Use
  Company Number: None

PATIENT
  Sex: Female
  Weight: 63.956 kg

DRUGS (2)
  1. GAMMAGARD LIQUID [Concomitant]
     Dosage: 65GM
     Route: 041
     Dates: start: 20110719, end: 20110719
  2. GAMMAGARD LIQUID [Suspect]
     Dosage: 65GM
     Route: 041
     Dates: start: 20110712, end: 20110712

REACTIONS (2)
  - HAEMOLYTIC ANAEMIA [None]
  - MATERNAL EXPOSURE DURING PREGNANCY [None]
